FAERS Safety Report 23065663 (Version 2)
Quarter: 2023Q4

REPORT INFORMATION
  Report Type: Other
  Country: CN (occurrence: CN)
  Receive Date: 20231014
  Receipt Date: 20231020
  Transmission Date: 20240110
  Serious: No
  Sender: FDA-Public Use
  Company Number: CN-Bion-012212

PATIENT
  Age: 11 Year
  Sex: Female

DRUGS (4)
  1. IBUPROFEN [Suspect]
     Active Substance: IBUPROFEN
     Indication: Panniculitis lobular
  2. DEXAMETHASONE [Suspect]
     Active Substance: DEXAMETHASONE
     Indication: Skin mass
  3. PREDNISONE [Concomitant]
     Active Substance: PREDNISONE
     Indication: Panniculitis lobular
  4. MYCOPHENOLATE MOFETIL [Concomitant]
     Active Substance: MYCOPHENOLATE MOFETIL
     Indication: Panniculitis lobular

REACTIONS (2)
  - Drug ineffective [Not Recovered/Not Resolved]
  - Rebound effect [Unknown]
